FAERS Safety Report 12405623 (Version 1)
Quarter: 2016Q2

REPORT INFORMATION
  Report Type: Spontaneous
  Country: US (occurrence: US)
  Receive Date: 20160526
  Receipt Date: 20160526
  Transmission Date: 20160815
  Serious: No
  Sender: FDA-Public Use
  Company Number: US-AUROBINDO-AUR-APU-2015-06226

PATIENT
  Sex: Male

DRUGS (1)
  1. VENLAFAXINE HYDROCHLORIDE TABLETS 75 MG [Suspect]
     Active Substance: VENLAFAXINE HYDROCHLORIDE
     Indication: PRODUCT USED FOR UNKNOWN INDICATION
     Route: 065

REACTIONS (2)
  - Drug ineffective [Recovered/Resolved]
  - Product substitution issue [Recovered/Resolved]
